FAERS Safety Report 5609562-X (Version None)
Quarter: 2008Q1

REPORT INFORMATION
  Report Type: 
  Country: None (occurrence: None)
  Receive Date: 20080131
  Receipt Date: 20080123
  Transmission Date: 20080703
  Serious: Yes (Life-Threatening, Hospitalization, Congenital Anomaly)
  Sender: FDA-Public Use
  Company Number: A0640660A

PATIENT
  Sex: Female

DRUGS (13)
  1. PAXIL CR [Suspect]
     Indication: DRUG USE FOR UNKNOWN INDICATION
     Dates: start: 20030101
  2. AMBIEN [Concomitant]
     Dates: start: 20030201
  3. PRENATAL VITAMINS [Concomitant]
     Dates: start: 20030201
  4. IBUPROFEN [Concomitant]
  5. EFFEXOR XR [Concomitant]
     Dates: start: 20030301
  6. SULFAMETHOXAZOLE AND TRIMETHOPRIM [Concomitant]
     Dates: start: 20030301
  7. MACROBID [Concomitant]
     Dates: start: 20030401
  8. FLONASE [Concomitant]
     Dates: start: 20030501
  9. PROCTOFOAM [Concomitant]
     Dates: start: 20030501
  10. DIPHENHYDRAMINE HCL [Concomitant]
     Dates: start: 20030601
  11. ACETAMINOPHEN AND HYDROCODONE BITARTRATE [Concomitant]
     Dates: start: 20030801
  12. FERROUS SULFATE [Concomitant]
     Dates: start: 20030901
  13. CEPHALEXIN [Concomitant]
     Dates: start: 20030901

REACTIONS (31)
  - ANHEDONIA [None]
  - ANXIETY [None]
  - AORTIC STENOSIS [None]
  - AORTIC VALVE INCOMPETENCE [None]
  - BRADYCARDIA [None]
  - BUNDLE BRANCH BLOCK LEFT [None]
  - CARDIAC MURMUR [None]
  - COARCTATION OF THE AORTA [None]
  - CONGENITAL ANOMALY [None]
  - DECREASED APPETITE [None]
  - DEVELOPMENTAL DELAY [None]
  - DRUG EXPOSURE DURING PREGNANCY [None]
  - EMOTIONAL DISORDER [None]
  - HEART DISEASE CONGENITAL [None]
  - HEART VALVE STENOSIS [None]
  - INJURY [None]
  - LEFT VENTRICLE OUTFLOW TRACT OBSTRUCTION [None]
  - LEFT VENTRICULAR HYPERTROPHY [None]
  - LUNG DISORDER [None]
  - LUNG INFILTRATION [None]
  - PAIN [None]
  - PERSISTENT FOETAL CIRCULATION [None]
  - PNEUMONIA [None]
  - QRS AXIS ABNORMAL [None]
  - SCAR [None]
  - SINUS ARRHYTHMIA [None]
  - SPEECH DISORDER DEVELOPMENTAL [None]
  - STAPHYLOCOCCAL INFECTION [None]
  - SUPRAVENTRICULAR TACHYCARDIA [None]
  - TACHYPNOEA [None]
  - VOMITING [None]
